FAERS Safety Report 8601957-5 (Version None)
Quarter: 2012Q3

REPORT INFORMATION
  Report Type: 
  Country: None (occurrence: None)
  Receive Date: 20120817
  Receipt Date: 20120621
  Transmission Date: 20120928
  Serious: Yes (Death)
  Sender: FDA-Public Use
  Company Number: US-BRISTOL-MYERS SQUIBB COMPANY-16674442

PATIENT
  Age: 42 Year
  Sex: Male

DRUGS (2)
  1. SPRYCEL [Suspect]
     Indication: METASTATIC RENAL CELL CARCINOMA
     Route: 048
     Dates: start: 20120316, end: 20120408
  2. VOTRIENT [Concomitant]
     Dosage: STRENGTH: 200MG

REACTIONS (1)
  - NEOPLASM MALIGNANT [None]
